FAERS Safety Report 7942319-3 (Version None)
Quarter: 2011Q4

REPORT INFORMATION
  Report Type: 
  Country: None (occurrence: None)
  Receive Date: 20111128
  Receipt Date: 20111122
  Transmission Date: 20120403
  Serious: Yes (Hospitalization)
  Sender: FDA-Public Use
  Company Number: FR-AMGEN-FRASP2011061484

PATIENT
  Age: 46 Year
  Sex: Female

DRUGS (9)
  1. NEULASTA [Suspect]
     Indication: CHEMOTHERAPY
     Dosage: 6 MG, UNK
     Route: 058
     Dates: start: 20110808, end: 20110827
  2. DEXRAZOXANE [Concomitant]
     Indication: ENDOMETRIAL CANCER
     Dosage: UNK
     Dates: start: 20110803
  3. TRANXENE [Concomitant]
     Indication: ENDOMETRIAL CANCER
     Dosage: 20 MG, PER CHEMO REGIM
     Route: 042
     Dates: start: 20110803
  4. IFOSFAMIDE [Concomitant]
     Indication: ENDOMETRIAL CANCER
     Dosage: 3100 MG, PER CHEMO REGIM
     Dates: start: 20110803
  5. SOLU-MEDROL [Concomitant]
     Indication: ENDOMETRIAL CANCER
     Dosage: 120 MG, PER CHEMO REGIM
     Dates: start: 20110803
  6. ONDANSETRON [Concomitant]
     Indication: ENDOMETRIAL CANCER
     Dosage: UNK
     Dates: start: 20110803
  7. UROMITEXAN [Concomitant]
     Indication: ENDOMETRIAL CANCER
     Dosage: UNK
     Dates: start: 20110803
  8. EMEND                              /01627301/ [Concomitant]
     Indication: ENDOMETRIAL CANCER
     Dosage: UNK
     Dates: start: 20110803
  9. ADRIAMYCIN PFS [Concomitant]
     Indication: ENDOMETRIAL CANCER
     Dosage: 46.5 MG, PER CHEMO REGIM
     Dates: start: 20110803

REACTIONS (1)
  - DRUG INEFFECTIVE [None]
